FAERS Safety Report 9521661 (Version 1)
Quarter: 2013Q3

REPORT INFORMATION
  Report Type: Spontaneous
  Country: CR (occurrence: None)
  Receive Date: 20130911
  Receipt Date: 20130911
  Transmission Date: 20140515
  Serious: Yes (Hospitalization)
  Sender: FDA-Public Use
  Company Number: SYM-2013-10544

PATIENT
  Age: 59 Year
  Sex: Male

DRUGS (2)
  1. WELLBUTRIN [Suspect]
  2. WELLBUTRIN [Suspect]

REACTIONS (6)
  - Depressed level of consciousness [None]
  - Dysgeusia [None]
  - Speech disorder [None]
  - Malaise [None]
  - Weight decreased [None]
  - Blood sodium decreased [None]
